FAERS Safety Report 5333839-9 (Version None)
Quarter: 2007Q2

REPORT INFORMATION
  Report Type: 
  Country: None (occurrence: None)
  Receive Date: 20070306
  Receipt Date: 20061213
  Transmission Date: 20071010
  Serious: Yes (Hospitalization)
  Sender: FDA-Public Use
  Company Number: A03200504308

PATIENT
  Age: 59 Year
  Sex: Male
  Weight: 86 kg

DRUGS (4)
  1. PLAVIX [Suspect]
     Indication: CATHETERISATION CARDIAC
     Dosage: 600 MG ONCE THEN 75 MG DAILY - ORAL
     Route: 048
     Dates: start: 20051213, end: 20051217
  2. ACETYLSALICYLIC ACID SRT [Concomitant]
  3. LISINOPRIL [Concomitant]
  4. SIMVASTATIN [Concomitant]

REACTIONS (2)
  - OVERDOSE [None]
  - RASH GENERALISED [None]
